FAERS Safety Report 10624911 (Version 1)
Quarter: 2014Q4

REPORT INFORMATION
  Report Type: Spontaneous
  Country: RS (occurrence: RS)
  Receive Date: 20141204
  Receipt Date: 20141204
  Transmission Date: 20150529
  Serious: Yes (Other)
  Sender: FDA-Public Use
  Company Number: RS-UCBSA-2014018167

PATIENT
  Age: 54 Year
  Sex: Female

DRUGS (13)
  1. NIFELAT [Concomitant]
     Active Substance: ATENOLOL\NIFEDIPINE
     Indication: PRODUCT USED FOR UNKNOWN INDICATION
     Dosage: UNK, AS NEEDED (PRN)
  2. LAMICTAL [Concomitant]
     Active Substance: LAMOTRIGINE
     Indication: PRODUCT USED FOR UNKNOWN INDICATION
     Dosage: UNK, 2X/DAY (BID)
     Route: 048
  3. URSOSAN [Concomitant]
     Indication: HEPATIC FIBROSIS
     Dosage: UNK UNK, 2X/DAY (BID)
  4. KEPPRA [Suspect]
     Active Substance: LEVETIRACETAM
     Indication: EPILEPSY
     Dosage: 1000 MG IN MORNING AND 500 MG IN THE EVENING
     Route: 048
     Dates: start: 2010
  5. TEGRETOL [Interacting]
     Active Substance: CARBAMAZEPINE
     Dosage: UNK
  6. TEGRETOL [Interacting]
     Active Substance: CARBAMAZEPINE
     Indication: EPILEPSY
     Dosage: UNK
     Route: 048
  7. BENSEDIN [Concomitant]
     Indication: PRODUCT USED FOR UNKNOWN INDICATION
     Dosage: UNK UNK, 3X/DAY (TID)
     Route: 048
  8. PHENOBARBITONE [Concomitant]
     Active Substance: PHENOBARBITAL
     Indication: PRODUCT USED FOR UNKNOWN INDICATION
     Dosage: UNK
  9. MONOPRIL PLUS [Concomitant]
     Indication: ESSENTIAL HYPERTENSION
     Route: 048
  10. BINEVOL [Concomitant]
     Indication: PRODUCT USED FOR UNKNOWN INDICATION
     Dosage: UNK
  11. AMLOGAL [Concomitant]
     Indication: PRODUCT USED FOR UNKNOWN INDICATION
     Dosage: UNK
  12. LASIX [Concomitant]
     Active Substance: FUROSEMIDE
     Indication: PRODUCT USED FOR UNKNOWN INDICATION
     Dosage: UNK
  13. EFTIL [Concomitant]
     Indication: PRODUCT USED FOR UNKNOWN INDICATION
     Dosage: UNK

REACTIONS (3)
  - Self injurious behaviour [Not Recovered/Not Resolved]
  - Hallucination [Unknown]
  - Drug interaction [Unknown]

NARRATIVE: CASE EVENT DATE: 2012
